FAERS Safety Report 15517505 (Version 3)
Quarter: 2018Q4

REPORT INFORMATION
  Report Type: Spontaneous
  Country: FR (occurrence: FR)
  Receive Date: 20181017
  Receipt Date: 20181115
  Transmission Date: 20190205
  Serious: Yes (Hospitalization)
  Sender: FDA-Public Use
  Company Number: FR-JNJFOC-20181010251

PATIENT
  Age: 69 Year
  Sex: Female
  Weight: 45 kg

DRUGS (1)
  1. XEPLION [Suspect]
     Active Substance: PALIPERIDONE PALMITATE
     Indication: SCHIZOPHRENIA
     Route: 030
     Dates: start: 20170601, end: 20181002

REACTIONS (3)
  - Disorientation [Unknown]
  - Pancytopenia [Recovered/Resolved]
  - Anaemia macrocytic [Recovered/Resolved]

NARRATIVE: CASE EVENT DATE: 201809
